FAERS Safety Report 5205119-3 (Version None)
Quarter: 2007Q1

REPORT INFORMATION
  Report Type: 
  Country: None (occurrence: None)
  Receive Date: 20070110
  Receipt Date: 20070108
  Transmission Date: 20070707
  Serious: Yes (Hospitalization)
  Sender: FDA-Public Use
  Company Number: DE-BOEHRINGER INGELHEIM PHARMACEUTICALS, INC.-2007-DE-00107DE

PATIENT
  Sex: Male

DRUGS (5)
  1. AGGRENOX [Suspect]
     Route: 048
  2. METOBETA [Suspect]
     Route: 048
  3. RAMIPRIL [Suspect]
     Dosage: RAMIPRIL 5X2.5 MG/HCT 5X12.5 MG
     Route: 048
  4. SIMVASTATIN [Suspect]
     Route: 048
  5. TEGRETOL [Suspect]
     Route: 048

REACTIONS (6)
  - DIZZINESS [None]
  - DRUG ABUSER [None]
  - HYPOTENSION [None]
  - NAUSEA [None]
  - OVERDOSE [None]
  - SUICIDE ATTEMPT [None]
